FAERS Safety Report 25188849 (Version 1)
Quarter: 2025Q2

REPORT INFORMATION
  Report Type: Other
  Country: US (occurrence: US)
  Receive Date: 20250411
  Receipt Date: 20250411
  Transmission Date: 20250716
  Serious: Yes (Death, Life-Threatening, Hospitalization, Other)
  Sender: ALVOGEN
  Company Number: US-ALVOGEN-2025096587

PATIENT
  Age: 15 Month
  Sex: Male

DRUGS (2)
  1. FENTANYL [Suspect]
     Active Substance: FENTANYL
     Indication: Product used for unknown indication
     Route: 048
  2. TRAMADOL [Suspect]
     Active Substance: TRAMADOL
     Indication: Product used for unknown indication
     Route: 048

REACTIONS (16)
  - Unresponsive to stimuli [Unknown]
  - Coma [Unknown]
  - Hypoxia [Unknown]
  - Nervous system injury [Unknown]
  - Cardio-respiratory arrest [Unknown]
  - Pulseless electrical activity [Unknown]
  - Sedation [Unknown]
  - Paralysis [Unknown]
  - Wheezing [Unknown]
  - Livedo reticularis [Unknown]
  - Mental disorder [Unknown]
  - Hyperglycaemia [Unknown]
  - Peripheral coldness [Recovering/Resolving]
  - Accidental exposure to product by child [Fatal]
  - Prescription drug used without a prescription [Unknown]
  - Incorrect route of product administration [Unknown]
